FAERS Safety Report 22290785 (Version 1)
Quarter: 2023Q2

REPORT INFORMATION
  Report Type: Report from Study
  Country: US (occurrence: US)
  Receive Date: 20230506
  Receipt Date: 20230506
  Transmission Date: 20230722
  Serious: Yes (Death)
  Sender: FDA-Public Use
  Company Number: US-ABBVIE-4755206

PATIENT
  Age: 74 Year
  Sex: Male

DRUGS (1)
  1. VENCLEXTA [Suspect]
     Active Substance: VENETOCLAX
     Indication: Product used for unknown indication
     Dosage: 800MG DAILY
     Route: 048
     Dates: start: 202208, end: 20230330

REACTIONS (1)
  - Death [Fatal]

NARRATIVE: CASE EVENT DATE: 20230330
